FAERS Safety Report 24769779 (Version 1)
Quarter: 2024Q4

REPORT INFORMATION
  Report Type: Report from Study
  Country: US (occurrence: US)
  Receive Date: 20241224
  Receipt Date: 20241224
  Transmission Date: 20250115
  Serious: Yes (Other)
  Sender: ABBVIE
  Company Number: US-ABBVIE-6055251

PATIENT
  Age: 37 Year
  Sex: Male

DRUGS (1)
  1. HUMIRA [Suspect]
     Active Substance: ADALIMUMAB
     Indication: Product used for unknown indication
     Route: 058
     Dates: start: 20150701

REACTIONS (9)
  - Blindness unilateral [Unknown]
  - Back pain [Recovering/Resolving]
  - Eye pain [Recovering/Resolving]
  - Eye inflammation [Unknown]
  - Vertigo [Unknown]
  - Chest pain [Recovering/Resolving]
  - Neck pain [Recovering/Resolving]
  - Kidney enlargement [Recovering/Resolving]
  - Ear disorder [Unknown]

NARRATIVE: CASE EVENT DATE: 20240101
